FAERS Safety Report 7347385-4 (Version None)
Quarter: 2011Q1

REPORT INFORMATION
  Report Type: 
  Country: None (occurrence: None)
  Receive Date: 20110311
  Receipt Date: 20110307
  Transmission Date: 20110831
  Serious: Yes (Other)
  Sender: FDA-Public Use
  Company Number: JP-ROCHE-760234

PATIENT
  Age: 46 Year
  Sex: Male

DRUGS (3)
  1. BASILIXIMAB [Concomitant]
     Route: 065
  2. PREDNISOLONE [Concomitant]
  3. CELLCEPT [Suspect]
     Indication: PROPHYLAXIS AGAINST TRANSPLANT REJECTION
     Route: 048

REACTIONS (3)
  - PLATELET COUNT DECREASED [None]
  - CYTOMEGALOVIRUS VIRAEMIA [None]
  - THROMBOTIC MICROANGIOPATHY [None]
